FAERS Safety Report 4370438-X (Version None)
Quarter: 2004Q2

REPORT INFORMATION
  Report Type: 
  Country: None (occurrence: None)
  Receive Date: 20040603
  Receipt Date: 20040211
  Transmission Date: 20050107
  Serious: No
  Sender: FDA-Public Use
  Company Number: US-BRISTOL-MYERS SQUIBB COMPANY-12502811

PATIENT
  Age: 5 Decade
  Sex: Female

DRUGS (4)
  1. ABILIFY [Suspect]
     Indication: AGGRESSION
     Dosage: STARTED 2.5 MG 00-APR-2003 INCREASED TO 7.5 MG 00-JUL-03.
     Route: 048
     Dates: start: 20030401
  2. ABILIFY [Suspect]
     Indication: ANXIETY
     Dosage: STARTED 2.5 MG 00-APR-2003 INCREASED TO 7.5 MG 00-JUL-03.
     Route: 048
     Dates: start: 20030401
  3. LAMICTAL [Concomitant]
  4. EFFEXOR XR [Concomitant]

REACTIONS (1)
  - BLOOD GLUCOSE INCREASED [None]
